FAERS Safety Report 6956045-0 (Version None)
Quarter: 2010Q3

REPORT INFORMATION
  Report Type: 
  Country: None (occurrence: None)
  Receive Date: 20100830
  Receipt Date: 20100820
  Transmission Date: 20110219
  Serious: Yes (Hospitalization)
  Sender: FDA-Public Use
  Company Number: GXKR2010ES09381

PATIENT
  Age: 65 Year
  Sex: Female

DRUGS (4)
  1. DOXYCYCLINE (NGX) [Suspect]
     Indication: RESPIRATORY TRACT INFECTION
     Dosage: 100 MG, Q12H
     Route: 048
  2. LEVOFLOXACIN [Suspect]
     Indication: RESPIRATORY TRACT INFECTION
     Dosage: 500 MG/DAY
     Route: 048
  3. SERTRALINE (NGX) [Suspect]
     Indication: MOOD DISORDER DUE TO A GENERAL MEDICAL CONDITION
     Dosage: 50 MG/DAY
     Route: 065
  4. CO-TRIMOXAZOLE (NGX) [Suspect]
     Indication: URINARY TRACT INFECTION
     Dosage: 1 DF, Q12H
     Route: 048

REACTIONS (8)
  - ASTHENIA [None]
  - CHOLESTASIS [None]
  - CYTOLYTIC HEPATITIS [None]
  - DECREASED APPETITE [None]
  - FAECES DISCOLOURED [None]
  - HEPATITIS [None]
  - OCULAR ICTERUS [None]
  - PRURITUS GENERALISED [None]
